FAERS Safety Report 9027903 (Version 1)
Quarter: 2013Q1

REPORT INFORMATION
  Report Type: Spontaneous
  Country: IL (occurrence: IL)
  Receive Date: 20130123
  Receipt Date: 20130123
  Transmission Date: 20140127
  Serious: No
  Sender: FDA-Public Use
  Company Number: IL-009507513-1301ISR008455

PATIENT
  Age: 61 Year
  Sex: Female
  Weight: 86 kg

DRUGS (1)
  1. SAPHRIS [Suspect]
     Indication: BIPOLAR I DISORDER
     Dosage: 5, BID
     Route: 060
     Dates: start: 20130109, end: 20130110

REACTIONS (2)
  - Dermatitis allergic [Recovering/Resolving]
  - Rash [Recovering/Resolving]
